FAERS Safety Report 4424131-5 (Version None)
Quarter: 2004Q3

REPORT INFORMATION
  Report Type: 
  Country: None (occurrence: None)
  Receive Date: 20040809
  Receipt Date: 20040727
  Transmission Date: 20050211
  Serious: Yes (Death, Life-Threatening, Other)
  Sender: FDA-Public Use
  Company Number: 2004IC000178

PATIENT
  Age: 54 Year
  Sex: Male

DRUGS (5)
  1. FLUOROURACIL [Suspect]
     Indication: COLON CANCER
     Dosage: 750 MG, INTRAVENOUS
     Route: 042
     Dates: start: 20040416, end: 20040507
  2. LEUCOVORIN CALCIUM [Suspect]
     Indication: COLON CANCER
     Dosage: 300 MG, INTRAVENOUS DRIP
     Route: 041
     Dates: start: 20040416, end: 20040507
  3. GLYBURIDE [Concomitant]
  4. AMOBAN [Concomitant]
  5. INSULIN [Concomitant]

REACTIONS (6)
  - CARDIAC ARREST [None]
  - CARDIAC FAILURE [None]
  - DECREASED APPETITE [None]
  - HYPERGLYCAEMIA [None]
  - LEUKOPENIA [None]
  - MALAISE [None]
